FAERS Safety Report 12661528 (Version 7)
Quarter: 2018Q1

REPORT INFORMATION
  Report Type: Spontaneous
  Country: US (occurrence: US)
  Receive Date: 20160817
  Receipt Date: 20180330
  Transmission Date: 20180508
  Serious: No
  Sender: FDA-Public Use
  Company Number: US-PFIZER INC-2016385107

PATIENT
  Age: 50 Year
  Sex: Male
  Weight: 95.25 kg

DRUGS (12)
  1. ANDROGEL [Concomitant]
     Active Substance: TESTOSTERONE
     Indication: ANDROGEN DEFICIENCY
     Dosage: UNK UNK, 1X/DAY
  2. LYRICA [Suspect]
     Active Substance: PREGABALIN
     Indication: NEUROPATHY PERIPHERAL
     Dosage: 300 MG, 2X/DAY
     Route: 048
     Dates: start: 20160825
  3. VIAGRA [Concomitant]
     Active Substance: SILDENAFIL CITRATE
     Indication: ERECTILE DYSFUNCTION
     Dosage: 100 MG, AS NEEDED
     Route: 048
     Dates: start: 20160825
  4. CHANTIX [Concomitant]
     Active Substance: VARENICLINE TARTRATE
     Indication: TOBACCO ABUSE
     Dosage: 1 MG, 2X/DAY
     Route: 048
     Dates: start: 20160825
  5. ELIQUIS [Concomitant]
     Active Substance: APIXABAN
     Indication: PULMONARY THROMBOSIS
     Dosage: 5 MG, 2X/DAY (ONE IN THE MORNING AND ONE IN THE AFTERNOON)
     Dates: start: 201607
  6. LYRICA [Suspect]
     Active Substance: PREGABALIN
     Dosage: 300 MG, 2X/DAY (1 CAP BY MOUTH TWICE A DAY)
     Route: 048
     Dates: start: 20170216
  7. OXYCODONE [Concomitant]
     Active Substance: OXYCODONE
     Indication: PAIN
     Dosage: 60 MG, 2X/DAY (30MG TABLETS BY MOUTH, 2 IN THE MORNING AND 2 IN THE AFTERNOON)
     Route: 048
     Dates: start: 2011
  8. LYRICA [Suspect]
     Active Substance: PREGABALIN
     Indication: PAIN
     Dosage: 300 MG, 2X/DAY
     Route: 048
     Dates: start: 2006
  9. LYRICA [Suspect]
     Active Substance: PREGABALIN
     Indication: POLYNEUROPATHY
     Dosage: 300 MG, 2X/DAY (1 CAP BY MOUTH TWICE A DAY)
     Route: 048
     Dates: start: 20160901
  10. MORPHINE [Concomitant]
     Active Substance: MORPHINE
     Indication: PAIN
     Dosage: ONE 60MG TABLET BY MOUTH IN THE AM; ONE 60MG TABLET BY MOUTH IN THE EVENING
     Route: 048
     Dates: start: 2011
  11. BUSPAR [Concomitant]
     Active Substance: BUSPIRONE HYDROCHLORIDE
     Indication: DEPRESSION
     Dosage: 4 DF, DAILY
  12. EFFEXOR [Concomitant]
     Active Substance: VENLAFAXINE HYDROCHLORIDE
     Indication: DEPRESSION
     Dosage: 225 MG, 1X/DAY (THREE TABLETS OF 75 MG IN THE MORNING)

REACTIONS (6)
  - Asthenia [Not Recovered/Not Resolved]
  - Androgen deficiency [Recovering/Resolving]
  - Vomiting [Not Recovered/Not Resolved]
  - Gastroenteritis [Recovered/Resolved]
  - Myalgia [Not Recovered/Not Resolved]
  - Overdose [Unknown]

NARRATIVE: CASE EVENT DATE: 20160809
